FAERS Safety Report 7214129-6 (Version None)
Quarter: 2011Q1

REPORT INFORMATION
  Report Type: 
  Country: None (occurrence: None)
  Receive Date: 20110107
  Receipt Date: 20101224
  Transmission Date: 20110831
  Serious: Yes (Hospitalization)
  Sender: FDA-Public Use
  Company Number: PT-RANBAXY-2010R1-40763

PATIENT
  Age: 6 Year
  Sex: Male

DRUGS (3)
  1. CLARITHROMYCIN [Concomitant]
     Indication: TONSILLITIS
     Dosage: UNK
     Route: 065
  2. VALPROIC ACID [Suspect]
     Indication: EPILEPSY
     Dosage: UNK
     Route: 065
  3. PHENOBARBITAL [Suspect]
     Indication: EPILEPSY
     Dosage: UNK
     Route: 065

REACTIONS (1)
  - DRUG RASH WITH EOSINOPHILIA AND SYSTEMIC SYMPTOMS [None]
